FAERS Safety Report 7777024-X (Version None)
Quarter: 2011Q3

REPORT INFORMATION
  Report Type: 
  Country: None (occurrence: None)
  Receive Date: 20110926
  Receipt Date: 20110926
  Transmission Date: 20111222
  Serious: Yes (Hospitalization, Other)
  Sender: FDA-Public Use
  Company Number: None

PATIENT
  Age: 22 Year
  Sex: Male
  Weight: 104.32 kg

DRUGS (1)
  1. OXYCONTIN [Suspect]
     Indication: OPEN FRACTURE
     Dosage: 1
     Route: 048
     Dates: start: 20110916, end: 20110921

REACTIONS (3)
  - ABDOMINAL PAIN UPPER [None]
  - DRUG INEFFECTIVE [None]
  - PRODUCT FORMULATION ISSUE [None]
